FAERS Safety Report 8533502-7 (Version None)
Quarter: 2012Q3

REPORT INFORMATION
  Report Type: 
  Country: None (occurrence: None)
  Receive Date: 20120724
  Receipt Date: 20120711
  Transmission Date: 20120928
  Serious: Yes (Hospitalization)
  Sender: FDA-Public Use
  Company Number: US-ELI_LILLY_AND_COMPANY-US201207003900

PATIENT
  Age: 69 Year
  Sex: Female

DRUGS (2)
  1. HUMULIN R [Suspect]
     Dosage: 180 U, EACH EVENING
  2. HUMULIN R [Suspect]
     Indication: DIABETES MELLITUS
     Dosage: 160 U, EACH MORNING

REACTIONS (1)
  - ACUTE CORONARY SYNDROME [None]
